FAERS Safety Report 6120231-2 (Version None)
Quarter: 2009Q1

REPORT INFORMATION
  Report Type: 
  Country: None (occurrence: None)
  Receive Date: 20090312
  Receipt Date: 20090227
  Transmission Date: 20090719
  Serious: Yes (Death)
  Sender: FDA-Public Use
  Company Number: 2009S1003527

PATIENT
  Age: 49 Year
  Sex: Male

DRUGS (9)
  1. PAXIL [Suspect]
     Indication: DEPRESSION
     Dosage: 30 MG;TWICE A DAY;ORAL
     Route: 048
     Dates: start: 20050101
  2. ETHANOL [Suspect]
  3. LORAZEPAM [Suspect]
     Indication: ANXIETY
     Dosage: 2 MG;TWICE A DAY; ORAL
     Route: 048
     Dates: start: 20070101
  4. CYCLOBENZAPRINE HCL [Suspect]
     Indication: DRUG USE FOR UNKNOWN INDICATION
     Dosage: ORAL
     Route: 048
  5. CLONAZEPAM [Suspect]
     Indication: AGORAPHOBIA
     Dosage: 2 MG; AS NEEDED; ORAL
     Route: 048
     Dates: start: 20070101
  6. METOPROLOL TARTRATE [Suspect]
     Indication: DRUG USE FOR UNKNOWN INDICATION
     Dosage: ORAL
     Route: 048
  7. MIRTAZAPINE [Suspect]
     Indication: DEPRESSION
     Dosage: 45 MG;DAILY;ORAL
     Route: 048
     Dates: start: 20070101
  8. QUETIAPINE FUMARATE [Suspect]
     Indication: PSYCHOTIC DISORDER
     Dosage: 300 MG; DAILY; ORAL
     Route: 048
     Dates: start: 20050101
  9. TRAMADOL HYDROCHLORIDE [Suspect]
     Indication: DRUG USE FOR UNKNOWN INDICATION
     Dosage: ORAL
     Route: 048

REACTIONS (1)
  - COMPLETED SUICIDE [None]
